FAERS Safety Report 6522765-5 (Version None)
Quarter: 2009Q4

REPORT INFORMATION
  Report Type: 
  Country: None (occurrence: None)
  Receive Date: 20091230
  Receipt Date: 20091217
  Transmission Date: 20100525
  Serious: Yes (Hospitalization)
  Sender: FDA-Public Use
  Company Number: FR-GENENTECH-296068

PATIENT
  Sex: Female
  Weight: 59 kg

DRUGS (10)
  1. MABTHERA [Suspect]
     Indication: NON-HODGKIN'S LYMPHOMA
     Dosage: 375 MG/M2, 1/MONTH
     Route: 042
     Dates: start: 20081126, end: 20090421
  2. BISOPROLOL [Suspect]
     Indication: HYPERTENSION
     Dosage: 10 MG, QD
     Route: 048
     Dates: end: 20090801
  3. CHOP REGIMEN [Concomitant]
     Indication: NON-HODGKIN'S LYMPHOMA
     Dosage: SIX CYCLES WERE  RECEIVED
     Dates: start: 20081126, end: 20090311
  4. NOLVADEX [Concomitant]
     Indication: BREAST CANCER
     Dosage: UNK
     Route: 048
     Dates: end: 20090801
  5. FLUDARA [Concomitant]
     Indication: WALDENSTROM'S MACROGLOBULINAEMIA RECURRENT
     Dosage: UNK
     Dates: start: 20020901
  6. FLUDARA [Concomitant]
     Dosage: UNK
     Dates: start: 20021001
  7. ARANESP [Concomitant]
     Indication: DRUG USE FOR UNKNOWN INDICATION
     Dosage: UNK
  8. ENDOTELON [Concomitant]
     Indication: DRUG USE FOR UNKNOWN INDICATION
     Dosage: UNK
  9. FOSAMAX [Concomitant]
     Indication: DRUG USE FOR UNKNOWN INDICATION
     Dosage: UNK
  10. ZELITREX [Concomitant]
     Indication: DRUG USE FOR UNKNOWN INDICATION
     Dosage: UNK

REACTIONS (2)
  - INTERSTITIAL LUNG DISEASE [None]
  - PULMONARY FIBROSIS [None]
